FAERS Safety Report 6397433-3 (Version None)
Quarter: 2009Q4

REPORT INFORMATION
  Report Type: 
  Country: None (occurrence: None)
  Receive Date: 20091012
  Receipt Date: 20091005
  Transmission Date: 20100525
  Serious: Yes (Hospitalization)
  Sender: FDA-Public Use
  Company Number: FR-BRISTOL-MYERS SQUIBB COMPANY-14808562

PATIENT
  Age: 62 Year
  Sex: Female

DRUGS (12)
  1. ENDOXAN [Suspect]
     Indication: BREAST CANCER
     Route: 042
     Dates: start: 20090709, end: 20090819
  2. EFFERALGAN [Suspect]
     Indication: ANALGESIC THERAPY
     Dates: start: 20090616, end: 20090730
  3. BI-PROFENID [Suspect]
     Indication: ANALGESIC THERAPY
     Dates: start: 20090709, end: 20090730
  4. FLUOROURACIL [Suspect]
     Indication: BREAST CANCER
     Dosage: 1DF=50MG/ML
     Route: 042
     Dates: start: 20090709, end: 20090819
  5. FARMORUBICINE [Suspect]
     Indication: BREAST CANCER
     Dates: start: 20090709, end: 20090730
  6. ABUFENE [Concomitant]
  7. LYRICA [Concomitant]
  8. MONOCRIXO [Concomitant]
  9. NEXIUM [Concomitant]
  10. VITAMIN B COMPLEX CAP [Concomitant]
  11. NARAMIG [Concomitant]
  12. INNOHEP [Concomitant]

REACTIONS (1)
  - CYTOLYTIC HEPATITIS [None]
